FAERS Safety Report 8440308-6 (Version None)
Quarter: 2012Q2

REPORT INFORMATION
  Report Type: 
  Country: None (occurrence: None)
  Receive Date: 20120615
  Receipt Date: 20120605
  Transmission Date: 20120825
  Serious: Yes (Hospitalization, Other)
  Sender: FDA-Public Use
  Company Number: US-ABBOTT-12P-163-0942429-00

PATIENT
  Sex: Female
  Weight: 59.928 kg

DRUGS (4)
  1. HUMIRA [Suspect]
     Indication: CROHN'S DISEASE
     Route: 058
     Dates: start: 20110815, end: 20120301
  2. SULFASALAZINE [Concomitant]
     Indication: CROHN'S DISEASE
     Dosage: DAILY
     Route: 048
  3. HUMIRA [Suspect]
     Dates: start: 20110301, end: 20110815
  4. PHENERGAN [Concomitant]
     Indication: NAUSEA
     Dosage: AS REQUIRED
     Route: 048

REACTIONS (9)
  - FATIGUE [None]
  - LUNG DISORDER [None]
  - DYSPNOEA [None]
  - METABOLIC ACIDOSIS [None]
  - ACIDOSIS [None]
  - BLOOD SODIUM DECREASED [None]
  - DYSPNOEA EXERTIONAL [None]
  - VAGINAL FISTULA [None]
  - CROHN'S DISEASE [None]
